FAERS Safety Report 24667759 (Version 3)
Quarter: 2024Q4

REPORT INFORMATION
  Report Type: Report from Study
  Country: US (occurrence: US)
  Receive Date: 20241127
  Receipt Date: 20241227
  Transmission Date: 20250114
  Serious: Yes (Hospitalization)
  Sender: ABBVIE
  Company Number: US-ABBVIE-6011775

PATIENT
  Age: 33 Year
  Sex: Female
  Weight: 51.709 kg

DRUGS (6)
  1. RINVOQ [Suspect]
     Active Substance: UPADACITINIB
     Indication: Crohn^s disease
     Dosage: DRUG STOP DATE: 17-NOV-2024 TO 20-NOV-2024
     Route: 048
     Dates: start: 20240918
  2. RINVOQ [Suspect]
     Active Substance: UPADACITINIB
     Indication: Crohn^s disease
     Dosage: DRUG STOP DATE: SEP 2024
     Route: 048
     Dates: start: 20240901
  3. CLOZAPINE [Concomitant]
     Active Substance: CLOZAPINE
     Indication: Anxiety
  4. LAMOTRIGINE [Concomitant]
     Active Substance: LAMOTRIGINE
     Indication: Bipolar disorder
  5. TYLENOL [Concomitant]
     Active Substance: ACETAMINOPHEN
     Indication: Abdominal pain
  6. ZOFRAN [Concomitant]
     Active Substance: ONDANSETRON HYDROCHLORIDE
     Indication: Crohn^s disease

REACTIONS (11)
  - Gastrointestinal oedema [Not Recovered/Not Resolved]
  - Crohn^s disease [Unknown]
  - Burning sensation [Unknown]
  - Herpes zoster [Recovering/Resolving]
  - Immunodeficiency [Not Recovered/Not Resolved]
  - Wound [Not Recovered/Not Resolved]
  - Dysphonia [Unknown]
  - Respiratory tract infection [Recovered/Resolved]
  - Respiratory tract congestion [Recovered/Resolved]
  - Oropharyngeal pain [Not Recovered/Not Resolved]
  - Neuralgia [Unknown]

NARRATIVE: CASE EVENT DATE: 20240101
